FAERS Safety Report 9875814 (Version 1)
Quarter: 2014Q1

REPORT INFORMATION
  Report Type: Spontaneous
  Country: US (occurrence: None)
  Receive Date: 20140205
  Receipt Date: 20140205
  Transmission Date: 20141002
  Serious: Yes (Other)
  Sender: FDA-Public Use
  Company Number: None

PATIENT
  Age: 73 Year
  Sex: Female
  Weight: 105.9 kg

DRUGS (12)
  1. GLEEVEC [Suspect]
     Route: 048
     Dates: start: 20130724
  2. PAXIL [Concomitant]
  3. SINGULAIR [Concomitant]
  4. COUMADIN [Concomitant]
  5. IMDUR [Concomitant]
  6. LOPRESSOR [Concomitant]
  7. LIPITOR [Concomitant]
  8. NEURONTIN [Concomitant]
  9. WELLBUTRIN [Concomitant]
  10. LASIX [Concomitant]
  11. LANTUS [Concomitant]
  12. HYDRODIURIL [Concomitant]

REACTIONS (1)
  - Fatigue [None]
